FAERS Safety Report 4889261-2 (Version None)
Quarter: 2006Q1

REPORT INFORMATION
  Report Type: 
  Country: None (occurrence: None)
  Receive Date: 20060124
  Receipt Date: 20051114
  Transmission Date: 20060701
  Serious: Yes (Other)
  Sender: FDA-Public Use
  Company Number: 2005UW17426

PATIENT
  Age: 50 Year
  Sex: Male

DRUGS (1)
  1. PRILOSEC [Suspect]
     Indication: GASTROINTESTINAL DISORDER
     Route: 048

REACTIONS (1)
  - PNEUMONIA [None]
